FAERS Safety Report 16422395 (Version 4)
Quarter: 2022Q1

REPORT INFORMATION
  Report Type: Spontaneous
  Country: US (occurrence: None)
  Receive Date: 20190612
  Receipt Date: 20220215
  Transmission Date: 20220423
  Serious: Yes (Other)
  Sender: FDA-Public Use
  Company Number: 2018SF33362

PATIENT
  Sex: Female
  Weight: 108.9 kg

DRUGS (14)
  1. NEXIUM [Suspect]
     Active Substance: ESOMEPRAZOLE MAGNESIUM
     Indication: Gastric pH decreased
     Route: 048
     Dates: start: 20120101, end: 20170228
  2. NEXIUM [Suspect]
     Active Substance: ESOMEPRAZOLE MAGNESIUM
     Indication: Gastrooesophageal reflux disease
     Route: 048
     Dates: start: 20120101, end: 20170228
  3. PRILOSEC [Suspect]
     Active Substance: OMEPRAZOLE MAGNESIUM
     Indication: Gastric pH decreased
     Route: 048
     Dates: start: 20120101, end: 20170228
  4. PRILOSEC [Suspect]
     Active Substance: OMEPRAZOLE MAGNESIUM
     Indication: Gastrooesophageal reflux disease
     Route: 048
     Dates: start: 20120101, end: 20170228
  5. PREVACID [Suspect]
     Active Substance: LANSOPRAZOLE
     Indication: Gastric pH decreased
     Route: 065
     Dates: start: 20120101, end: 20170228
  6. PREVACID [Suspect]
     Active Substance: LANSOPRAZOLE
     Indication: Gastrooesophageal reflux disease
     Route: 065
     Dates: start: 20120101, end: 20170228
  7. LISINOPRIL [Concomitant]
     Active Substance: LISINOPRIL
     Indication: Hypertension
     Dates: start: 20080317, end: 20171002
  8. CIPROFLOXACIN [Concomitant]
     Active Substance: CIPROFLOXACIN
     Indication: Bacterial infection
     Dates: start: 20090121, end: 20170706
  9. ACYCLOVIR [Concomitant]
     Active Substance: ACYCLOVIR
     Indication: Viral infection
     Dates: start: 20121204, end: 20151021
  10. CEPHALEXIN [Concomitant]
     Active Substance: CEPHALEXIN
     Indication: Bacterial infection
     Dates: start: 20070724, end: 20100828
  11. NAPROXEN [Concomitant]
     Active Substance: NAPROXEN
     Indication: Pain
     Dates: start: 20060807, end: 20060811
  12. TYLENOL [Concomitant]
     Active Substance: ACETAMINOPHEN
     Indication: Pain
  13. LOVENOX [Concomitant]
     Active Substance: ENOXAPARIN SODIUM
  14. PROTONIX [Concomitant]
     Active Substance: PANTOPRAZOLE SODIUM

REACTIONS (7)
  - Chronic kidney disease [Not Recovered/Not Resolved]
  - End stage renal disease [Unknown]
  - Acute kidney injury [Unknown]
  - Renal failure [Unknown]
  - Renal injury [Unknown]
  - Tubulointerstitial nephritis [Unknown]
  - Dyspepsia [Unknown]
